FAERS Safety Report 8277543-6 (Version None)
Quarter: 2012Q2

REPORT INFORMATION
  Report Type: 
  Country: None (occurrence: None)
  Receive Date: 20120412
  Receipt Date: 20120405
  Transmission Date: 20120825
  Serious: Yes (Hospitalization, Other)
  Sender: FDA-Public Use
  Company Number: US-MERCK-1110USA03834

PATIENT
  Age: 69 Year
  Sex: Female
  Weight: 91 kg

DRUGS (6)
  1. CELEBREX [Concomitant]
     Route: 048
  2. FOSAMAX [Suspect]
     Route: 048
     Dates: start: 20081101, end: 20091001
  3. NEXIUM [Concomitant]
     Indication: GASTROOESOPHAGEAL REFLUX DISEASE
     Route: 048
     Dates: start: 20010101
  4. FOSAMAX [Suspect]
     Indication: OSTEOPOROSIS POSTMENOPAUSAL
     Route: 048
     Dates: start: 20020101, end: 20080508
  5. CALCIUM (UNSPECIFIED) [Concomitant]
     Route: 048
     Dates: start: 20080410
  6. VITAMIN D (UNSPECIFIED) [Concomitant]
     Route: 048
     Dates: start: 20080410

REACTIONS (47)
  - HYPOKALAEMIA [None]
  - HIATUS HERNIA [None]
  - RHINITIS ALLERGIC [None]
  - FEMUR FRACTURE [None]
  - DIABETIC NEUROPATHY [None]
  - FRACTURE MALUNION [None]
  - TENDONITIS [None]
  - FOOT DEFORMITY [None]
  - EMBOLIC STROKE [None]
  - ABDOMINAL PAIN [None]
  - JOINT EFFUSION [None]
  - MUSCLE STRAIN [None]
  - DEPRESSION [None]
  - ANAEMIA [None]
  - PLEURAL EFFUSION [None]
  - IRON DEFICIENCY ANAEMIA [None]
  - VOMITING [None]
  - TEMPOROMANDIBULAR JOINT SYNDROME [None]
  - ASTHENIA [None]
  - ATELECTASIS [None]
  - CONTUSION [None]
  - HAEMORRHOIDS [None]
  - ARTHRITIS [None]
  - VITAMIN D DEFICIENCY [None]
  - SINUSITIS [None]
  - DYSLIPIDAEMIA [None]
  - CLOSTRIDIUM DIFFICILE COLITIS [None]
  - FATIGUE [None]
  - OSTEOARTHRITIS [None]
  - TYPE 2 DIABETES MELLITUS [None]
  - MYALGIA [None]
  - LOW TURNOVER OSTEOPATHY [None]
  - BONE PAIN [None]
  - STRESS FRACTURE [None]
  - TOOTH DISORDER [None]
  - LOWER LIMB FRACTURE [None]
  - INTERVERTEBRAL DISC DEGENERATION [None]
  - INTERVERTEBRAL DISC PROTRUSION [None]
  - NODAL OSTEOARTHRITIS [None]
  - FRACTURED COCCYX [None]
  - PAIN IN EXTREMITY [None]
  - LOWER GASTROINTESTINAL HAEMORRHAGE [None]
  - FALL [None]
  - WOUND INFECTION [None]
  - NAUSEA [None]
  - MACULAR DEGENERATION [None]
  - LUMBAR SPINAL STENOSIS [None]
